FAERS Safety Report 8487778-5 (Version None)
Quarter: 2012Q3

REPORT INFORMATION
  Report Type: 
  Country: None (occurrence: None)
  Receive Date: 20120705
  Receipt Date: 20120629
  Transmission Date: 20120928
  Serious: Yes (Hospitalization)
  Sender: FDA-Public Use
  Company Number: FR-PFIZER INC-2012129732

PATIENT
  Age: 53 Year
  Sex: Female

DRUGS (32)
  1. ERYTHROMYCIN [Concomitant]
     Dosage: UNK
     Dates: start: 20120514
  2. LEXOMIL [Concomitant]
  3. NEORAL [Concomitant]
  4. PERINDOPRIL ERBUMINE [Concomitant]
  5. IRBESARTAN [Concomitant]
  6. ROCEPHIN [Concomitant]
     Dosage: UNK
     Route: 042
     Dates: start: 20120408, end: 20120412
  7. ZYVOX [Concomitant]
     Dosage: UNK
     Dates: start: 20120504, end: 20120511
  8. TENORMIN [Concomitant]
  9. LASIX [Concomitant]
  10. TAZOBACTAM [Suspect]
     Dosage: 12 G  PER DAY
     Route: 042
     Dates: start: 20120519
  11. VANCOMYCIN [Concomitant]
     Dosage: UNK
     Route: 042
     Dates: start: 20120424, end: 20120505
  12. CANCIDAS [Concomitant]
     Indication: CANDIDIASIS
     Dosage: UNK
     Route: 042
     Dates: start: 20120416, end: 20120420
  13. PREDNISOLONE [Concomitant]
  14. ZOCOR [Concomitant]
  15. NEXIUM [Concomitant]
  16. FLUCONAZOLE [Concomitant]
     Dosage: UNK
     Route: 042
     Dates: start: 20120421, end: 20120429
  17. CANCIDAS [Concomitant]
     Dosage: UNK
     Route: 042
     Dates: start: 20120429
  18. ERYTHROMYCIN [Concomitant]
     Dosage: UNK
     Dates: start: 20120406, end: 20120427
  19. RENAGEL [Concomitant]
  20. ROCEPHIN [Concomitant]
     Dosage: UNK
     Route: 042
     Dates: start: 20120425, end: 20120429
  21. AMIKACIN [Concomitant]
     Dosage: UNK
     Route: 042
     Dates: start: 20120426, end: 20120504
  22. ARANESP [Concomitant]
  23. UN-ALFA [Concomitant]
  24. TAZOBACTAM [Suspect]
     Dosage: UNK
     Route: 042
     Dates: start: 20120424, end: 20120425
  25. TAZOBACTAM [Suspect]
     Dosage: UNK
     Route: 042
     Dates: start: 20120501, end: 20120502
  26. CELLCEPT [Concomitant]
  27. TAZOBACTAM [Suspect]
     Dosage: UNK
     Route: 042
     Dates: start: 20120404, end: 20120408
  28. AMIKACIN [Concomitant]
     Dosage: UNK
     Route: 042
     Dates: start: 20120404, end: 20120409
  29. ZYVOX [Concomitant]
     Dosage: UNK
     Dates: start: 20120424, end: 20120424
  30. LERCANIDIPINE [Concomitant]
  31. CINACALCET [Concomitant]
  32. VITAMIN D [Concomitant]

REACTIONS (2)
  - DRUG RASH WITH EOSINOPHILIA AND SYSTEMIC SYMPTOMS [None]
  - AGRANULOCYTOSIS [None]
